FAERS Safety Report 16059469 (Version 2)
Quarter: 2019Q1

REPORT INFORMATION
  Report Type: Report from Study
  Country: US (occurrence: US)
  Receive Date: 20190311
  Receipt Date: 20190325
  Transmission Date: 20190418
  Serious: Yes (Hospitalization)
  Sender: FDA-Public Use
  Company Number: US-ACTELION-A-NJ2018-169362

PATIENT
  Age: 55 Year
  Sex: Female

DRUGS (23)
  1. WARFARIN [Concomitant]
     Active Substance: WARFARIN
     Dosage: 2 MG
  2. PRAVASTATIN. [Concomitant]
     Active Substance: PRAVASTATIN
  3. PRILOSEC [Concomitant]
     Active Substance: OMEPRAZOLE MAGNESIUM
     Dosage: 20 MG
  4. AMIODARONE [Concomitant]
     Active Substance: AMIODARONE
  5. METOPROLOL. [Concomitant]
     Active Substance: METOPROLOL
     Dosage: 75 MG
  6. ATORVASTIN [Concomitant]
     Active Substance: ATORVASTATIN
     Dosage: 20 MG, QD
  7. MECLIZINE [Concomitant]
     Active Substance: MECLIZINE HYDROCHLORIDE
     Dosage: 12.5 MG, TID
  8. BYSTOLIC [Concomitant]
     Active Substance: NEBIVOLOL HYDROCHLORIDE
  9. LACTOSE FAST ACTING RELIEF [Concomitant]
     Dosage: 9000 UNK
  10. TRACLEER [Suspect]
     Active Substance: BOSENTAN
     Indication: PULMONARY HYPERTENSION
     Dosage: 125 MG, BID
     Route: 048
     Dates: start: 20140414
  11. VERAPAMIL [Concomitant]
     Active Substance: VERAPAMIL HYDROCHLORIDE
  12. CITRACAL + D [Concomitant]
     Active Substance: CALCIUM CITRATE\VITAMIN D
     Dosage: 200-250 UNK
  13. FOLIC ACID. [Concomitant]
     Active Substance: FOLIC ACID
     Dosage: 1 MG
  14. SERTRALINE [Concomitant]
     Active Substance: SERTRALINE HYDROCHLORIDE
     Dosage: 25 MG
  15. ASPIRIN. [Concomitant]
     Active Substance: ASPIRIN
     Dosage: 81 MG
  16. LYSINE [Concomitant]
     Active Substance: LYSINE
     Dosage: 500 MG
  17. VITAMIN D [Concomitant]
     Active Substance: CHOLECALCIFEROL
  18. PEPCID [Concomitant]
     Active Substance: FAMOTIDINE
     Dosage: 40 MG, QD
  19. LASIX [Concomitant]
     Active Substance: FUROSEMIDE
     Dosage: 40 MG
  20. LIPITOR [Concomitant]
     Active Substance: ATORVASTATIN CALCIUM
     Dosage: 20 MG
  21. LEVOTHYROXINE. [Concomitant]
     Active Substance: LEVOTHYROXINE
     Dosage: 50 MCG
  22. SYMBICORT [Concomitant]
     Active Substance: BUDESONIDE\FORMOTEROL FUMARATE DIHYDRATE
  23. LORATADINE. [Concomitant]
     Active Substance: LORATADINE
     Dosage: 10 MG, QD

REACTIONS (4)
  - Transient ischaemic attack [Recovered/Resolved]
  - Visual impairment [Not Recovered/Not Resolved]
  - Dyspnoea [Unknown]
  - Chest pain [Unknown]

NARRATIVE: CASE EVENT DATE: 20190204
